FAERS Safety Report 24200995 (Version 1)
Quarter: 2024Q3

REPORT INFORMATION
  Report Type: Spontaneous
  Country: FR (occurrence: FR)
  Receive Date: 20240812
  Receipt Date: 20240812
  Transmission Date: 20241017
  Serious: Yes (Other)
  Sender: MYLAN
  Company Number: None

PATIENT
  Age: 75 Year
  Sex: Male

DRUGS (1)
  1. NOREPINEPHRINE BITARTRATE [Suspect]
     Active Substance: NOREPINEPHRINE BITARTRATE
     Indication: Blood pressure measurement
     Dosage: 120 MILLILITER, QH (120 ML/H,SULFITES-FREE, SOLUTION TO BE DILUTED FOR INFUSION)
     Route: 042
     Dates: start: 20240701, end: 20240701

REACTIONS (3)
  - Infusion site oedema [Recovering/Resolving]
  - Infusion site erythema [Recovering/Resolving]
  - Administration site extravasation [Recovering/Resolving]

NARRATIVE: CASE EVENT DATE: 20240701
